FAERS Safety Report 21065417 (Version 1)
Quarter: 2022Q3

REPORT INFORMATION
  Report Type: Report from Study
  Country: MX (occurrence: MX)
  Receive Date: 20220711
  Receipt Date: 20220711
  Transmission Date: 20221026
  Serious: Yes (Death, Other)
  Sender: FDA-Public Use
  Company Number: MX-TAKEDA-MX201825169

PATIENT
  Age: 21 Year
  Sex: Male
  Weight: 34 kg

DRUGS (2)
  1. IDURSULFASE [Suspect]
     Active Substance: IDURSULFASE
     Indication: Mucopolysaccharidosis II
     Dosage: 3 DOSAGE FORM, 1/WEEK
     Route: 042
     Dates: start: 20130601
  2. IDURSULFASE [Suspect]
     Active Substance: IDURSULFASE
     Dosage: 18 MILLIGRAM, 1/WEEK
     Route: 042
     Dates: start: 20130601, end: 20220630

REACTIONS (6)
  - Pulmonary haemorrhage [Fatal]
  - Bone marrow failure [Fatal]
  - Weight decreased [Unknown]
  - Underweight [Unknown]
  - Product dose omission issue [Not Recovered/Not Resolved]
  - Product availability issue [Not Recovered/Not Resolved]

NARRATIVE: CASE EVENT DATE: 20210421
